FAERS Safety Report 16542065 (Version 2)
Quarter: 2019Q3

REPORT INFORMATION
  Report Type: Spontaneous
  Country: US (occurrence: US)
  Receive Date: 20190708
  Receipt Date: 20190711
  Transmission Date: 20191004
  Serious: No
  Sender: FDA-Public Use
  Company Number: US-009507513-1907USA003746

PATIENT
  Age: 79 Year
  Sex: Female

DRUGS (18)
  1. DULERA [Suspect]
     Active Substance: FORMOTEROL FUMARATE DIHYDRATE\MOMETASONE FUROATE
     Indication: EMPHYSEMA
  2. PANTOPRAZOLE [Concomitant]
     Active Substance: PANTOPRAZOLE
     Dosage: 40 MILLIGRAM DAILY
  3. BIOTIN [Concomitant]
     Active Substance: BIOTIN
     Dosage: 1000 MCG DAILY
  4. GABAPENTIN. [Concomitant]
     Active Substance: GABAPENTIN
     Dosage: 100 MILLIGRAM TWICE A DAY
  5. MELATONIN [Concomitant]
     Active Substance: MELATONIN
     Dosage: 15 MILLIGRAM IN THE EVENING
  6. GABAPENTIN. [Concomitant]
     Active Substance: GABAPENTIN
     Dosage: 300 MILLIGRAM AT NIGHT
  7. TYLENOL [Concomitant]
     Active Substance: ACETAMINOPHEN
     Dosage: UNK, AS NEEDED
  8. OXYGEN. [Concomitant]
     Active Substance: OXYGEN
     Dosage: 2 LITERS AT NIGHT AND AS NEEDED
  9. LISINOPRIL. [Concomitant]
     Active Substance: LISINOPRIL
     Dosage: 20 MILLIGRAM DAILY
  10. BETHANECHOL CHLORIDE. [Concomitant]
     Active Substance: BETHANECHOL CHLORIDE
     Dosage: 25 MILLIGRAM THREE TIMES A DAY
  11. SCHIFF MOVE FREE [Concomitant]
     Active Substance: CHONDROITIN SULFATE A\GLUCOSAMINE
     Dosage: UNK, QD
  12. DULERA [Suspect]
     Active Substance: FORMOTEROL FUMARATE DIHYDRATE\MOMETASONE FUROATE
     Indication: CHRONIC OBSTRUCTIVE PULMONARY DISEASE
     Dosage: 2 PUFFS TWICE A DAY
     Route: 055
  13. SPIRIVA [Concomitant]
     Active Substance: TIOTROPIUM BROMIDE MONOHYDRATE
     Dosage: UNK
  14. OCUVITE PRESERVISION [Concomitant]
     Dosage: UNK, TID
  15. TUMS [Concomitant]
     Active Substance: CALCIUM CARBONATE
     Dosage: UNK, AS NEEDED
  16. VITAMIN D (UNSPECIFIED) [Concomitant]
     Active Substance: VITAMIN D NOS
     Dosage: 1000 IU DAILY
  17. CARBIDOPA (+) LEVODOPA [Concomitant]
     Active Substance: CARBIDOPA\LEVODOPA
     Dosage: 7 TABLETS A DAY
     Route: 048
  18. CLOPIDOGREL [Concomitant]
     Active Substance: CLOPIDOGREL BISULFATE
     Dosage: 75 MILLIGRAM DAILY

REACTIONS (6)
  - Cough [Recovered/Resolved]
  - Oropharyngeal pain [Recovered/Resolved]
  - Product use issue [Unknown]
  - Product quality issue [Unknown]
  - Product dose omission [Unknown]
  - Poor quality device used [Unknown]

NARRATIVE: CASE EVENT DATE: 201906
